FAERS Safety Report 25441951 (Version 1)
Quarter: 2025Q2

REPORT INFORMATION
  Report Type: Spontaneous
  Country: BR (occurrence: BR)
  Receive Date: 20250616
  Receipt Date: 20250616
  Transmission Date: 20250716
  Serious: Yes (Other)
  Sender: NOVARTIS
  Company Number: BR-002147023-NVSC2025BR084532

PATIENT
  Sex: Male
  Weight: 64 kg

DRUGS (7)
  1. INCLISIRAN [Suspect]
     Active Substance: INCLISIRAN
     Indication: Low density lipoprotein
     Route: 058
     Dates: start: 202408
  2. INCLISIRAN [Suspect]
     Active Substance: INCLISIRAN
     Indication: Arteriosclerosis
     Route: 058
     Dates: start: 202411
  3. INCLISIRAN [Suspect]
     Active Substance: INCLISIRAN
     Route: 058
     Dates: start: 202506
  4. GOSERELIN [Concomitant]
     Active Substance: GOSERELIN
     Indication: Adrenal blockade therapy
     Route: 065
  5. TESTOSTERONE [Concomitant]
     Active Substance: TESTOSTERONE
     Indication: Prostate cancer
     Route: 065
  6. AMLODIPINE BESYLATE\INDAPAMIDE\PERINDOPRIL ARGININE [Concomitant]
     Active Substance: AMLODIPINE BESYLATE\INDAPAMIDE\PERINDOPRIL ARGININE
     Indication: Hypertension
     Dosage: UNK, QD (10/2.5/10 MG)
     Route: 065
  7. INSPRA [Concomitant]
     Active Substance: EPLERENONE
     Indication: Hypertension
     Dosage: 25 MG, QD
     Route: 065

REACTIONS (1)
  - Prostatic specific antigen increased [Unknown]
